FAERS Safety Report 5201483-X (Version None)
Quarter: 2007Q1

REPORT INFORMATION
  Report Type: 
  Country: None (occurrence: None)
  Receive Date: 20070104
  Receipt Date: 20061220
  Transmission Date: 20070707
  Serious: Yes (Hospitalization)
  Sender: FDA-Public Use
  Company Number: S06-FRA-05454-01

PATIENT
  Age: 86 Year
  Sex: Male

DRUGS (12)
  1. CITALOPRAM HYDROBROMIDE [Suspect]
     Indication: DRUG USE FOR UNKNOWN INDICATION
     Dosage: 20 MG QD PO
     Route: 048
     Dates: start: 20061201, end: 20061206
  2. IMOVANE (ZOPICLONE) [Suspect]
     Indication: DRUG USE FOR UNKNOWN INDICATION
     Dosage: 7.5 MG QD PO
     Route: 048
     Dates: start: 20061001, end: 20061206
  3. LYRICA [Suspect]
     Indication: DRUG USE FOR UNKNOWN INDICATION
     Dosage: 75 MG QD PO
     Route: 048
     Dates: start: 20061102, end: 20061206
  4. LIORESAL [Concomitant]
  5. CASODEX [Concomitant]
  6. LEUPROLIDE ACETATE [Concomitant]
  7. DUPHALAC [Concomitant]
  8. DAFALGAN (PARACETAMOL) [Concomitant]
  9. PANTOPRAZOLE SODIUM [Concomitant]
  10. LOVENOX [Concomitant]
  11. SPECIAFOLDINE (FOLIC ACID) [Concomitant]
  12. FERROUS FUMARATE [Concomitant]

REACTIONS (5)
  - BLOOD CREATININE INCREASED [None]
  - COMA [None]
  - CONFUSIONAL STATE [None]
  - SOMNOLENCE [None]
  - URINARY RETENTION [None]
